FAERS Safety Report 6583855-4 (Version None)
Quarter: 2010Q1

REPORT INFORMATION
  Report Type: 
  Country: None (occurrence: None)
  Receive Date: 20100213
  Receipt Date: 20100213
  Transmission Date: 20100710
  Serious: Yes (Hospitalization)
  Sender: FDA-Public Use
  Company Number: None

PATIENT
  Age: 24 Year
  Sex: Female
  Weight: 52.6173 kg

DRUGS (2)
  1. OCELLA 3 MG/ 0.03 MG BARR LABORATORIES [Suspect]
     Indication: CONTRACEPTION
     Dosage: 1 TABLET DAILY PO
     Route: 048
  2. OCELLA 3 MG/ 0.03 MG BARR LABORATORIES [Suspect]
     Indication: DYSMENORRHOEA
     Dosage: 1 TABLET DAILY PO
     Route: 048

REACTIONS (1)
  - GALLBLADDER DISORDER [None]
